FAERS Safety Report 8494505-4 (Version None)
Quarter: 2012Q3

REPORT INFORMATION
  Report Type: 
  Country: None (occurrence: None)
  Receive Date: 20120709
  Receipt Date: 20120313
  Transmission Date: 20120928
  Serious: No
  Sender: FDA-Public Use
  Company Number: US-COVIDIEN/TYCO HEALTHCARE/MALLINCKRODT-T201201095

PATIENT
  Sex: Female

DRUGS (6)
  1. TRAZODONE HCL [Concomitant]
     Indication: DEPRESSION
     Dosage: 40 MG, QD
     Route: 048
  2. LORAZEPAM [Concomitant]
     Indication: SLEEP DISORDER
     Dosage: 1 MG HS
     Route: 048
  3. CITALOPRAM HYDROBROMIDE [Concomitant]
     Indication: DEPRESSION
     Dosage: UNK
     Route: 048
  4. CISPLATIN [Concomitant]
     Indication: NEURALGIA
     Dosage: 3600 MG, QD
     Route: 048
  5. TRAZODONE HCL [Concomitant]
     Indication: SLEEP DISORDER
  6. OXYCODONE/ACETAMINOPHEN [Suspect]
     Indication: PAIN
     Dosage: 1 TABLET TID, PRN
     Route: 048
     Dates: start: 20110101

REACTIONS (1)
  - DRUG SCREEN NEGATIVE [None]
